FAERS Safety Report 15456845 (Version 1)
Quarter: 2018Q3

REPORT INFORMATION
  Report Type: Spontaneous
  Country: US (occurrence: US)
  Receive Date: 20180928
  Receipt Date: 20180928
  Transmission Date: 20181010
  Serious: No
  Sender: FDA-Public Use
  Company Number: None

PATIENT
  Age: 63 Year
  Sex: Male
  Weight: 64.5 kg

DRUGS (1)
  1. CREON [Suspect]
     Active Substance: PANCRELIPASE AMYLASE\PANCRELIPASE LIPASE\PANCRELIPASE PROTEASE
     Indication: PANCREATITIS RELAPSING
     Dosage: ?          OTHER FREQUENCY:ONCE;?
     Route: 040

REACTIONS (3)
  - Dyspnoea [None]
  - Nausea [None]
  - Incorrect route of drug administration [None]

NARRATIVE: CASE EVENT DATE: 20180927
